FAERS Safety Report 5714237-2 (Version None)
Quarter: 2008Q2

REPORT INFORMATION
  Report Type: 
  Country: None (occurrence: None)
  Receive Date: 20080423
  Receipt Date: 20071114
  Transmission Date: 20081010
  Serious: No
  Sender: FDA-Public Use
  Company Number: US-KINGPHARMUSA00001-K200701486

PATIENT

DRUGS (3)
  1. SKELAXIN [Suspect]
     Indication: BACK PAIN
     Dosage: 800 MG, QD TO BID
     Route: 048
     Dates: start: 20071113
  2. MOTRIN [Concomitant]
     Indication: BACK PAIN
     Dosage: 600 MG, TID
     Route: 048
  3. ALLOPURINOL [Concomitant]
     Dosage: UNK, UNK
     Route: 048

REACTIONS (3)
  - PRURITUS [None]
  - RASH [None]
  - URTICARIA [None]
